FAERS Safety Report 7172958-1 (Version None)
Quarter: 2010Q4

REPORT INFORMATION
  Report Type: 
  Country: None (occurrence: None)
  Receive Date: 20101203
  Receipt Date: 20090701
  Transmission Date: 20110411
  Serious: Yes (Death, Other)
  Sender: FDA-Public Use
  Company Number: UTC-002313

PATIENT
  Sex: Female

DRUGS (1)
  1. REMODULIN [Suspect]
     Dosage: INTRAVENOUS
     Route: 042
     Dates: start: 20090601, end: 20090701

REACTIONS (1)
  - SEPSIS [None]
